FAERS Safety Report 5850941-3 (Version None)
Quarter: 2008Q3

REPORT INFORMATION
  Report Type: 
  Country: None (occurrence: None)
  Receive Date: 20080820
  Receipt Date: 20080529
  Transmission Date: 20090109
  Serious: No
  Sender: FDA-Public Use
  Company Number: US-BAYER-200824763NA

PATIENT
  Age: 47 Year
  Sex: Female
  Weight: 61 kg

DRUGS (4)
  1. MIRENA [Suspect]
     Indication: MENORRHAGIA
     Route: 015
     Dates: start: 20080430
  2. METOPROLOL TARTRATE [Concomitant]
     Indication: ARRHYTHMIA
  3. ASPIRIN [Concomitant]
     Indication: ARTHRITIS
  4. HYDROXYCHLOROQUINE [Concomitant]
     Indication: ARRHYTHMIA

REACTIONS (1)
  - MENORRHAGIA [None]
